FAERS Safety Report 24654814 (Version 1)
Quarter: 2024Q4

REPORT INFORMATION
  Report Type: Spontaneous
  Country: SA (occurrence: SA)
  Receive Date: 20241122
  Receipt Date: 20241122
  Transmission Date: 20250115
  Serious: Yes (Hospitalization)
  Sender: BIOMARIN
  Company Number: SA-BIOMARINAP-SA-2024-162043

PATIENT

DRUGS (1)
  1. NAGLAZYME [Suspect]
     Active Substance: GALSULFASE
     Indication: Mucopolysaccharidosis VI
     Route: 042

REACTIONS (2)
  - Abdominal distension [Unknown]
  - Peripheral swelling [Unknown]
